FAERS Safety Report 6179281-2 (Version None)
Quarter: 2009Q2

REPORT INFORMATION
  Report Type: 
  Country: None (occurrence: None)
  Receive Date: 20090430
  Receipt Date: 20090417
  Transmission Date: 20091009
  Serious: No
  Sender: FDA-Public Use
  Company Number: DSU-2009-00905

PATIENT
  Age: 69 Year
  Sex: Female
  Weight: 86.1834 kg

DRUGS (5)
  1. WELCHOL [Suspect]
     Indication: HYPERCHOLESTEROLAEMIA
     Dosage: 3750 MG (1875 MG, BID), PER ORAL
     Route: 048
     Dates: start: 20090401
  2. SYNTHROID (LEVOTHYROXINE SODIUM) (TABLET) [Concomitant]
  3. NEXIUM [Concomitant]
  4. LOTREL (AMLODIPINE, BENAZEPRIL HYDROCHLORIDE) (TABLET) [Concomitant]
  5. SINGULAIR (MONTELUKAST) (TABLET) [Concomitant]

REACTIONS (1)
  - DYSPHAGIA [None]
